FAERS Safety Report 9095042 (Version 2)
Quarter: 2013Q3

REPORT INFORMATION
  Report Type: Report from Study
  Country: US (occurrence: US)
  Receive Date: 20130201
  Receipt Date: 20130913
  Transmission Date: 20140515
  Serious: Yes (Hospitalization)
  Sender: FDA-Public Use
  Company Number: US-ELI_LILLY_AND_COMPANY-US201109001118

PATIENT
  Age: 78 Year
  Sex: Male

DRUGS (5)
  1. TERIPARATIDE [Suspect]
     Indication: OSTEOPOROSIS
     Dosage: 20 UG, QD
     Dates: start: 20110824, end: 201301
  2. TERIPARATIDE [Suspect]
     Indication: SENILE OSTEOPOROSIS
     Dosage: 20 UG, QD
     Dates: end: 201301
  3. TERIPARATIDE [Suspect]
     Dosage: 20 UG, QD
     Dates: end: 201301
  4. TERIPARATIDE [Suspect]
     Dosage: 20 UG, QD
     Dates: end: 201301
  5. METHOTREXATE [Concomitant]
     Indication: RHEUMATOID ARTHRITIS
     Dosage: 3.5 MG, WEEKLY (1/W)

REACTIONS (18)
  - Cardiac failure congestive [Unknown]
  - Pulmonary embolism [Unknown]
  - Paraesthesia [Not Recovered/Not Resolved]
  - Malaise [Recovering/Resolving]
  - Musculoskeletal stiffness [Unknown]
  - Myalgia [Recovering/Resolving]
  - Musculoskeletal pain [Not Recovered/Not Resolved]
  - Pain in extremity [Not Recovered/Not Resolved]
  - Gait disturbance [Not Recovered/Not Resolved]
  - Peripheral coldness [Not Recovered/Not Resolved]
  - Feeling abnormal [Not Recovered/Not Resolved]
  - Musculoskeletal disorder [Not Recovered/Not Resolved]
  - Balance disorder [Not Recovered/Not Resolved]
  - Headache [Recovering/Resolving]
  - Neck pain [Not Recovered/Not Resolved]
  - Arthralgia [Recovering/Resolving]
  - Pain [Unknown]
  - Muscle spasms [Unknown]
